FAERS Safety Report 12798430 (Version 1)
Quarter: 2016Q3

REPORT INFORMATION
  Report Type: Report from Study
  Country: US (occurrence: US)
  Receive Date: 20160930
  Receipt Date: 20160930
  Transmission Date: 20161109
  Serious: Yes (Other)
  Sender: FDA-Public Use
  Company Number: US-ROCHE-1835422

PATIENT
  Age: 56 Year
  Sex: Female
  Weight: 109.1 kg

DRUGS (15)
  1. IXABEPILONE [Suspect]
     Active Substance: IXABEPILONE
     Dosage: COURSE 2
     Route: 042
     Dates: start: 20110912
  2. IXABEPILONE [Suspect]
     Active Substance: IXABEPILONE
     Dosage: COURSE 5
     Route: 042
     Dates: start: 20111114
  3. BEVACIZUMAB [Suspect]
     Active Substance: BEVACIZUMAB
     Dosage: COURSE 7
     Route: 042
     Dates: start: 20111227
  4. BEVACIZUMAB [Suspect]
     Active Substance: BEVACIZUMAB
     Dosage: COURSE 8
     Route: 042
     Dates: start: 20120116
  5. IXABEPILONE [Suspect]
     Active Substance: IXABEPILONE
     Dosage: COURSE 6
     Route: 042
     Dates: start: 20111205
  6. BEVACIZUMAB [Suspect]
     Active Substance: BEVACIZUMAB
     Dosage: COURSE 3
     Route: 042
     Dates: start: 20111003
  7. IXABEPILONE [Suspect]
     Active Substance: IXABEPILONE
     Indication: ENDOMETRIAL CANCER
     Dosage: COURSE 1
     Route: 042
     Dates: start: 20110822
  8. BEVACIZUMAB [Suspect]
     Active Substance: BEVACIZUMAB
     Dosage: COURSE 4
     Route: 042
     Dates: start: 20111024
  9. BEVACIZUMAB [Suspect]
     Active Substance: BEVACIZUMAB
     Dosage: COURSE 2
     Route: 042
     Dates: start: 20110912
  10. BEVACIZUMAB [Suspect]
     Active Substance: BEVACIZUMAB
     Dosage: COURSE 5
     Route: 042
     Dates: start: 20111114
  11. BEVACIZUMAB [Suspect]
     Active Substance: BEVACIZUMAB
     Dosage: COURSE 6
     Route: 042
     Dates: start: 20111205
  12. IXABEPILONE [Suspect]
     Active Substance: IXABEPILONE
     Dosage: COURSE 4
     Route: 042
     Dates: start: 20111024
  13. CARBOPLATIN. [Suspect]
     Active Substance: CARBOPLATIN
     Indication: ENDOMETRIAL CANCER
     Route: 042
  14. BEVACIZUMAB [Suspect]
     Active Substance: BEVACIZUMAB
     Indication: ENDOMETRIAL CANCER
     Dosage: COURSE 1
     Route: 042
     Dates: start: 20110822
  15. IXABEPILONE [Suspect]
     Active Substance: IXABEPILONE
     Dosage: COURSE 3
     Route: 042
     Dates: start: 20111003

REACTIONS (3)
  - Anaphylactic reaction [Unknown]
  - Peripheral motor neuropathy [Unknown]
  - Neutrophil count decreased [Unknown]
